FAERS Safety Report 7911393-2 (Version None)
Quarter: 2011Q4

REPORT INFORMATION
  Report Type: 
  Country: None (occurrence: None)
  Receive Date: 20111114
  Receipt Date: 20111109
  Transmission Date: 20120403
  Serious: Yes (Hospitalization)
  Sender: FDA-Public Use
  Company Number: NL-ASTELLAS-2011EU007866

PATIENT
  Sex: Female
  Weight: 62 kg

DRUGS (1)
  1. VESICARE [Suspect]
     Indication: URGE INCONTINENCE
     Dosage: 10 MG, UID/QD
     Route: 048
     Dates: start: 20110501, end: 20111012

REACTIONS (2)
  - HEART RATE INCREASED [None]
  - DRY MOUTH [None]
